FAERS Safety Report 17283978 (Version 1)
Quarter: 2020Q1

REPORT INFORMATION
  Report Type: Report from Study
  Country: US (occurrence: US)
  Receive Date: 20200117
  Receipt Date: 20200117
  Transmission Date: 20200409
  Serious: Yes (Death)
  Sender: FDA-Public Use
  Company Number: US-PFIZER INC-2013227969

PATIENT
  Age: 71 Year
  Sex: Female
  Weight: 106.17 kg

DRUGS (67)
  1. KENALOG [Concomitant]
     Active Substance: TRIAMCINOLONE ACETONIDE
     Indication: NECK PAIN
     Dosage: ONCE
     Route: 030
     Dates: start: 20130717, end: 20130717
  2. PYRIDOXINE [Concomitant]
     Active Substance: PYRIDOXINE
     Indication: SUPPLEMENTATION THERAPY
     Dosage: 100 MG, DAILY
     Route: 048
     Dates: end: 20130718
  3. FUROSEMIDE. [Concomitant]
     Active Substance: FUROSEMIDE
     Indication: CARDIAC FAILURE
     Dosage: 20 MG, DAILY
     Route: 048
     Dates: end: 20130718
  4. NORMAL SALINE [Concomitant]
     Active Substance: SODIUM CHLORIDE
     Dosage: 250 ML ONCE
     Route: 042
     Dates: start: 20130730, end: 20130730
  5. WARFARIN [Concomitant]
     Active Substance: WARFARIN
     Indication: THROMBOSIS PROPHYLAXIS
     Dosage: 5 MG, ONCE
     Route: 048
     Dates: end: 20130719
  6. MORPHINE CR [Concomitant]
     Indication: NECK PAIN
     Dosage: 15 MG, EVERY 12H
     Route: 048
     Dates: start: 20130719, end: 20130719
  7. CEFTRIAXONE. [Concomitant]
     Active Substance: CEFTRIAXONE
     Indication: SINUSITIS
     Dosage: 1 G, DAILY
     Route: 042
     Dates: start: 20130719, end: 20130720
  8. CEFEPIME [Concomitant]
     Active Substance: CEFEPIME HYDROCHLORIDE
     Indication: PROPHYLAXIS
     Dosage: 1 G, EVERY 8H
     Route: 042
     Dates: start: 20130720, end: 20130730
  9. HYDROMORPHONE [Concomitant]
     Active Substance: HYDROMORPHONE
     Indication: NECK PAIN
     Dosage: PCA, PRN
     Route: 042
     Dates: start: 20130720, end: 20130724
  10. LORAZEPAM. [Concomitant]
     Active Substance: LORAZEPAM
     Dosage: 0.5 MG, ONCE
     Route: 042
     Dates: start: 20130721, end: 20130721
  11. MAGNESIUM OXIDE. [Concomitant]
     Active Substance: MAGNESIUM OXIDE
     Indication: HYPOMAGNESAEMIA
     Dosage: 400 MG, DAILY
     Route: 048
     Dates: start: 20130722, end: 20130730
  12. ACETAMINOPHEN. [Concomitant]
     Active Substance: ACETAMINOPHEN
     Indication: PROPHYLAXIS
     Dosage: 650 MG, ONCE
     Route: 048
     Dates: start: 20130725, end: 20130725
  13. RASBURICASE [Concomitant]
     Active Substance: RASBURICASE
     Indication: HYPERURICAEMIA
     Dosage: 6 MG, ONCE
     Route: 042
     Dates: start: 20130730, end: 20130730
  14. GLASDEGIB [Suspect]
     Active Substance: GLASDEGIB
     Indication: ACUTE MYELOID LEUKAEMIA
     Dosage: 100 MG, ONCE DAILY CONTINUOUS
     Route: 048
     Dates: start: 20130729, end: 20130801
  15. CYTARABINE. [Suspect]
     Active Substance: CYTARABINE
     Indication: ACUTE MYELOID LEUKAEMIA
     Dosage: 20 MG, TWICE DAILY ON DAYS 1-10 OF EACH 28 DAY CYCLE
     Route: 058
     Dates: start: 20130727, end: 20130801
  16. MORPHINE [Concomitant]
     Active Substance: MORPHINE
     Dosage: 30MG, EVERY 6H PRN
     Route: 048
     Dates: start: 20130719, end: 20130719
  17. MORPHINE [Concomitant]
     Active Substance: MORPHINE
     Dosage: 15 MG,  EVERY 6H PRN
     Route: 048
     Dates: start: 20130725, end: 20130730
  18. LIDOCAINE. [Concomitant]
     Active Substance: LIDOCAINE
     Indication: NECK PAIN
     Dosage: 700 MG, DAILY
     Route: 061
     Dates: start: 20130720, end: 20130803
  19. LIDOCAINE. [Concomitant]
     Active Substance: LIDOCAINE
     Dosage: 10 ML, ONCE
     Dates: start: 20130721, end: 20130721
  20. POTASSIUM CHLORIDE. [Concomitant]
     Active Substance: POTASSIUM CHLORIDE
     Dosage: 20 MEQ, ONCE
     Route: 048
     Dates: start: 20130728, end: 20130728
  21. LACTULOSE. [Concomitant]
     Active Substance: LACTULOSE
     Indication: CONSTIPATION
     Dosage: 30 G, ONCE
     Route: 048
     Dates: start: 20130727, end: 20130727
  22. TRAMADOL. [Concomitant]
     Active Substance: TRAMADOL
     Indication: NECK PAIN
     Dosage: 50 MG, EVERY 4 HOURS, AS NEEDED
     Route: 048
     Dates: end: 20130718
  23. MORPHINE [Concomitant]
     Active Substance: MORPHINE
     Dosage: 2-4 MG PRN
     Route: 042
     Dates: start: 20130719, end: 20130720
  24. NORMAL SALINE [Concomitant]
     Active Substance: SODIUM CHLORIDE
     Indication: HYPOVOLAEMIA
     Dosage: ONCE
     Route: 042
     Dates: start: 20130718, end: 20130718
  25. WARFARIN [Concomitant]
     Active Substance: WARFARIN
     Dosage: 5 MG, DAILY
     Route: 048
     Dates: start: 20130724, end: 20130727
  26. CYCLOBENZAPRINE. [Concomitant]
     Active Substance: CYCLOBENZAPRINE
     Indication: NECK PAIN
     Dosage: 10 MG, TID PRN
     Route: 048
     Dates: start: 20130719, end: 20130720
  27. CALCIUM GLUCONATE. [Concomitant]
     Active Substance: CALCIUM GLUCONATE
     Indication: HYPOCALCAEMIA
     Dosage: 1 G, ONCE
     Route: 042
     Dates: start: 20130721, end: 20130721
  28. VANCOMYCIN [Concomitant]
     Active Substance: VANCOMYCIN
     Indication: INFECTION PROPHYLAXIS
     Dosage: 1250 MG, EVERY 12H
     Route: 042
     Dates: start: 20130722, end: 20130723
  29. DEMEROL [Concomitant]
     Active Substance: MEPERIDINE HYDROCHLORIDE
     Indication: NECK PAIN
     Dosage: UNK
     Dates: start: 20130717, end: 20130717
  30. CALCIUM PHOSPHATE [Concomitant]
     Active Substance: CALCIUM PHOSPHATE
     Indication: SUPPLEMENTATION THERAPY
     Dosage: UNK, DAILY
     Route: 048
     Dates: end: 20130718
  31. LISINOPRIL. [Concomitant]
     Active Substance: LISINOPRIL
     Indication: HYPERTENSION
     Dosage: 5 MG, DAILY
     Route: 048
     Dates: end: 20130718
  32. POLYETHYLENE GLYCOL [Concomitant]
     Active Substance: POLYETHYLENE GLYCOLS
     Indication: CONSTIPATION
     Dosage: 17 G, ONCE
     Route: 048
     Dates: start: 20130722, end: 20130722
  33. VALIUM [Concomitant]
     Active Substance: DIAZEPAM
     Indication: NECK PAIN
     Dosage: UNK
     Dates: start: 20130717, end: 20130717
  34. FUROSEMIDE. [Concomitant]
     Active Substance: FUROSEMIDE
     Dosage: 40 MG, 2X/DAY
     Route: 042
     Dates: start: 20130726, end: 20130728
  35. FUROSEMIDE. [Concomitant]
     Active Substance: FUROSEMIDE
     Dosage: 20 MG, 2X/DAY
     Route: 042
     Dates: start: 20130728, end: 20130729
  36. FUROSEMIDE. [Concomitant]
     Active Substance: FUROSEMIDE
     Dosage: 20 MG, ONCE
     Route: 042
     Dates: start: 20130729, end: 20130729
  37. HEPARIN [Concomitant]
     Active Substance: HEPARIN SODIUM
     Indication: FLUID REPLACEMENT
     Dosage: 4.3-38.5 ML, IV HOURLY
     Route: 042
     Dates: start: 20130720, end: 20130730
  38. NORMAL SALINE [Concomitant]
     Active Substance: SODIUM CHLORIDE
     Indication: FLUID REPLACEMENT
     Dosage: 125 ML, HOURLY
     Route: 042
     Dates: start: 20130719, end: 20130720
  39. NORMAL SALINE [Concomitant]
     Active Substance: SODIUM CHLORIDE
     Dosage: 10 ML, DAILY
     Route: 042
     Dates: start: 20130724, end: 20130801
  40. WARFARIN [Concomitant]
     Active Substance: WARFARIN
     Dosage: 5 MG, ONCE
     Route: 048
     Dates: start: 20130730, end: 20130730
  41. OXYCODONE [Concomitant]
     Active Substance: OXYCODONE
     Indication: NECK PAIN
     Dosage: 5 MG, EVERY 6H PRN
     Route: 048
     Dates: start: 20130719, end: 20130719
  42. METOPROLOL TARTRATE. [Concomitant]
     Active Substance: METOPROLOL TARTRATE
     Indication: ATRIAL FIBRILLATION
     Dosage: 25 MG, 2X/DAY
     Route: 048
     Dates: start: 20130722, end: 20130729
  43. MAGNESIUM SULFATE. [Concomitant]
     Active Substance: MAGNESIUM SULFATE
     Indication: HYPOMAGNESAEMIA
     Dosage: 2 G, ONCE
     Route: 042
     Dates: start: 20130723, end: 20130723
  44. ALLOPURINOL. [Concomitant]
     Active Substance: ALLOPURINOL
     Indication: HYPERURICAEMIA
     Dosage: 300 MG, DAILY
     Route: 048
     Dates: start: 20130730, end: 20130801
  45. FUROSEMIDE. [Concomitant]
     Active Substance: FUROSEMIDE
     Indication: FLUID OVERLOAD
     Dosage: 20 MG, DAILY
     Route: 042
     Dates: start: 20130721, end: 20130722
  46. HEPARIN [Concomitant]
     Active Substance: HEPARIN SODIUM
     Indication: THROMBOSIS PROPHYLAXIS
     Dosage: 5000 IU, 3X/DAY
     Route: 058
     Dates: end: 20130718
  47. HEPARIN [Concomitant]
     Active Substance: HEPARIN SODIUM
     Dosage: 30 IU, QAM AS NEEDED
     Route: 042
     Dates: start: 20130724, end: 20130801
  48. MORPHINE [Concomitant]
     Active Substance: MORPHINE
     Indication: NECK PAIN
     Dosage: 15 MG, EVERY 4H AS NEEDED
     Route: 048
     Dates: start: 20130718, end: 20130719
  49. NORMAL SALINE [Concomitant]
     Active Substance: SODIUM CHLORIDE
     Dosage: 50 ML, HOURLY
     Route: 042
     Dates: start: 20130730, end: 20130731
  50. SENNA [Concomitant]
     Active Substance: SENNA LEAF\SENNOSIDES\SENNOSIDES A AND B
     Indication: CONSTIPATION
     Dosage: 17.2 MG, DAILY
     Route: 048
     Dates: start: 20130719, end: 20130801
  51. CEFEPIME [Concomitant]
     Active Substance: CEFEPIME HYDROCHLORIDE
     Indication: INFECTION PROPHYLAXIS
     Dosage: 1 G, EVERY 12H
     Route: 042
     Dates: start: 20130730, end: 20130731
  52. LORAZEPAM. [Concomitant]
     Active Substance: LORAZEPAM
     Indication: ANXIETY
     Dosage: 0.5 - 1MG, EVERY 6H PRN
     Route: 048
     Dates: start: 20130720, end: 20130802
  53. IPRATROPIUM WITH ALBUTEROL [Concomitant]
     Indication: DYSPNOEA
     Dosage: 0.5/3 MG, EVERY 6H PRN
     Route: 055
     Dates: start: 20130725, end: 20130802
  54. POTASSIUM [Concomitant]
     Active Substance: POTASSIUM
     Indication: PROPHYLAXIS
     Dosage: 40 MG, DAILY
     Route: 048
     Dates: end: 20130718
  55. FUROSEMIDE. [Concomitant]
     Active Substance: FUROSEMIDE
     Dosage: 40 MG, DAILY
     Route: 042
     Dates: start: 20130723, end: 20130725
  56. WARFARIN [Concomitant]
     Active Substance: WARFARIN
     Dosage: 7.5 MG, DAILY
     Route: 048
     Dates: start: 20130728, end: 20130729
  57. DOCUSATE SODIUM. [Concomitant]
     Active Substance: DOCUSATE SODIUM
     Indication: CONSTIPATION
     Dosage: 100 MG, 2X/DAY
     Route: 048
     Dates: start: 20130719, end: 20130801
  58. HYDROMORPHONE [Concomitant]
     Active Substance: HYDROMORPHONE
     Dosage: 1 MG, EVERY 4H PRN
     Route: 048
     Dates: start: 20130724, end: 20130725
  59. BUDESONIDE/FORMOTEROL [Concomitant]
     Active Substance: BUDESONIDE\FORMOTEROL
     Indication: DYSPNOEA
     Dosage: 320/9 MCG, 2X/DAY
     Route: 055
     Dates: start: 20130729, end: 20130803
  60. CYANOCOBALAMIN. [Concomitant]
     Active Substance: CYANOCOBALAMIN
     Indication: VITAMIN B12 DEFICIENCY
     Dosage: 1000 UG, DAILY
     Route: 048
     Dates: end: 20130718
  61. NORMAL SALINE [Concomitant]
     Active Substance: SODIUM CHLORIDE
     Indication: HYPERURICAEMIA
     Dosage: 75 ML, HOURLY
     Route: 042
     Dates: start: 20130720, end: 20130722
  62. NICOTINE. [Concomitant]
     Active Substance: NICOTINE
     Indication: SMOKING CESSATION THERAPY
     Dosage: NICOTINE PATCH 14 MG, DAILY
     Route: 061
     Dates: start: 20130719, end: 20130803
  63. CYCLOBENZAPRINE. [Concomitant]
     Active Substance: CYCLOBENZAPRINE
     Dosage: 5 MG, ONCE
     Route: 048
     Dates: start: 20130723, end: 20130723
  64. AZITHROMYCIN ANHYDROUS. [Concomitant]
     Active Substance: AZITHROMYCIN ANHYDROUS
     Indication: PROPHYLAXIS
     Dosage: 500 MG, DAILY
     Route: 048
     Dates: start: 20130720, end: 20130725
  65. POTASSIUM CHLORIDE. [Concomitant]
     Active Substance: POTASSIUM CHLORIDE
     Indication: HYPOKALAEMIA
     Dosage: 10 MEQ, ONCE
     Route: 048
     Dates: start: 20130721, end: 20130721
  66. NYSTATIN. [Concomitant]
     Active Substance: NYSTATIN
     Indication: CANDIDA INFECTION
     Dosage: 500000 IU, 4X/DAY
     Route: 048
     Dates: start: 20130727, end: 20130801
  67. HYDROXYUREA. [Concomitant]
     Active Substance: HYDROXYUREA
     Indication: LEUKOCYTOSIS
     Dosage: 500 MG, 3X/DAY
     Route: 048
     Dates: start: 20130730, end: 20130731

REACTIONS (1)
  - Acute respiratory distress syndrome [Fatal]

NARRATIVE: CASE EVENT DATE: 20130731
